FAERS Safety Report 9167511 (Version 1)
Quarter: 2013Q1

REPORT INFORMATION
  Report Type: Spontaneous
  Country: IT (occurrence: None)
  Receive Date: 20130305
  Receipt Date: 20130305
  Transmission Date: 20140127
  Serious: Yes (Other)
  Sender: FDA-Public Use
  Company Number: FK201300523

PATIENT
  Age: 60 Year
  Sex: Male

DRUGS (2)
  1. OXALIPLATIN [Suspect]
     Indication: RECTAL CANCER
     Dosage: 130 MG, CYCLICAL, INTRAVENOUS
     Route: 042
     Dates: start: 20100601, end: 20130130
  2. CALCIUM LEVOFOLINATE PENTAHYDRATE (CALCIUM LEVOFOLINATE) [Concomitant]
     Indication: RECTAL CANCER
     Dates: start: 20100601, end: 20130130

REACTIONS (5)
  - Dyspnoea [None]
  - Oxygen saturation decreased [None]
  - Urticaria [None]
  - Hypersensitivity [None]
  - Infusion related reaction [None]
